FAERS Safety Report 10067750 (Version 1)
Quarter: 2014Q2

REPORT INFORMATION
  Report Type: Spontaneous
  Country: US (occurrence: None)
  Receive Date: 20140407
  Receipt Date: 20140407
  Transmission Date: 20141212
  Serious: Yes (Hospitalization)
  Sender: FDA-Public Use
  Company Number: 2014040002

PATIENT
  Age: 67 Year
  Sex: Female

DRUGS (2)
  1. SOMA [Suspect]
  2. OXYCONTIN (OXYCODONE HYDROCHLORIDE) [Suspect]
     Indication: PAIN
     Dates: end: 20140308

REACTIONS (4)
  - Dehydration [None]
  - Intentional product misuse [None]
  - Drug withdrawal syndrome [None]
  - Balance disorder [None]
